FAERS Safety Report 8799181 (Version 2)
Quarter: 2012Q4

REPORT INFORMATION
  Report Type: Report from Study
  Country: ES (occurrence: ES)
  Receive Date: 20120920
  Receipt Date: 20121030
  Transmission Date: 20130627
  Serious: Yes (Hospitalization)
  Sender: FDA-Public Use
  Company Number: ES-BAXTER-2012BAX017078

PATIENT
  Age: 78 Year
  Sex: Female
  Weight: 51 kg

DRUGS (23)
  1. GENOXAL [Suspect]
     Indication: DIFFUSE LARGE B-CELL LYMPHOMA
     Route: 042
     Dates: start: 20120112
  2. GENOXAL [Suspect]
     Route: 042
     Dates: start: 20120503
  3. RITUXIMAB [Suspect]
     Indication: DIFFUSE LARGE B-CELL LYMPHOMA
     Route: 042
     Dates: start: 20120112
  4. RITUXIMAB [Suspect]
     Route: 042
     Dates: start: 20120619
  5. DOXORUBICIN [Suspect]
     Indication: DIFFUSE LARGE B-CELL LYMPHOMA
     Route: 042
     Dates: start: 20120112
  6. DOXORUBICIN [Suspect]
     Route: 042
     Dates: start: 20120503
  7. VINCRISTINE [Suspect]
     Indication: DIFFUSE LARGE B-CELL LYMPHOMA
     Route: 042
     Dates: start: 20120112
  8. VINCRISTINE [Suspect]
     Route: 042
     Dates: start: 20120503
  9. PREDNISONE [Suspect]
     Indication: DIFFUSE LARGE B-CELL LYMPHOMA
     Route: 048
     Dates: start: 20120112
  10. PREDNISONE [Suspect]
     Route: 048
     Dates: start: 20120507
  11. PARACETAMOL [Concomitant]
     Indication: PROPHYLAXIS
     Route: 065
     Dates: start: 20120112
  12. DEXCHLORPHENIRAMINE [Concomitant]
     Indication: PROPHYLAXIS
     Route: 065
     Dates: start: 20120112
  13. HYDROCORTISONE [Concomitant]
     Indication: ASTHENIA
     Route: 065
     Dates: start: 20120117
  14. OMEPRAZOLE [Concomitant]
     Indication: PROPHYLAXIS
     Route: 065
     Dates: start: 20120112
  15. SYMBICORT [Concomitant]
     Indication: BRONCHOSPASM
     Route: 065
     Dates: start: 20120405, end: 20120809
  16. METHOTREXATE [Concomitant]
     Indication: DRUG USE FOR UNKNOWN INDICATION
     Route: 065
     Dates: start: 20120202
  17. IBUPROFEN [Concomitant]
     Indication: LUMBAR PAIN
     Route: 065
     Dates: start: 20120513
  18. DARBEPOETIN ALFA [Concomitant]
     Indication: ANEMIA
     Route: 065
     Dates: start: 20120524
  19. TRAMADOL [Concomitant]
     Indication: LUMBAR PAIN
     Route: 065
     Dates: start: 20120513
  20. MAYGACE [Concomitant]
     Indication: DRUG USE FOR UNKNOWN INDICATION
     Route: 065
     Dates: start: 20121001
  21. CEFTRIAXONE [Concomitant]
     Indication: DIARRHEA
     Route: 065
     Dates: start: 20120922, end: 20120928
  22. CIPROFLOXACIN [Concomitant]
     Indication: DIARRHEA
     Route: 065
     Dates: start: 20120922, end: 20120928
  23. ASPIRIN [Concomitant]
     Indication: CARDIAC ARRHYTHMIA
     Route: 065
     Dates: start: 20120922

REACTIONS (3)
  - Bronchitis [Recovered/Resolved]
  - Asthenia [Recovering/Resolving]
  - Bronchospasm [Recovered/Resolved]
